FAERS Safety Report 7363223-8 (Version None)
Quarter: 2011Q1

REPORT INFORMATION
  Report Type: 
  Country: None (occurrence: None)
  Receive Date: 20110309
  Receipt Date: 20110222
  Transmission Date: 20110831
  Serious: Yes (Other)
  Sender: FDA-Public Use
  Company Number: AUR-APL-2011-00651

PATIENT
  Age: 59 Year
  Sex: Male
  Weight: 108.84 kg

DRUGS (7)
  1. LIPITOR [Suspect]
     Indication: BLOOD CHOLESTEROL INCREASED
     Dosage: 40MG-DAILY-ORAL
     Route: 048
     Dates: start: 20050201
  2. ACETYLSALICYLIC ACID SRT [Concomitant]
  3. AVAPRO [Concomitant]
  4. METOPROLOL [Suspect]
     Dates: end: 20100101
  5. GLIPIZIDE [Concomitant]
  6. PRILOSEC [Concomitant]
  7. METFORMIN [Concomitant]

REACTIONS (1)
  - DEVICE MALFUNCTION [None]
